FAERS Safety Report 7479290-7 (Version None)
Quarter: 2011Q2

REPORT INFORMATION
  Report Type: 
  Country: None (occurrence: None)
  Receive Date: 20110513
  Receipt Date: 20110511
  Transmission Date: 20111010
  Serious: Yes (Other)
  Sender: FDA-Public Use
  Company Number: US-PFIZER INC-2004063298

PATIENT
  Sex: Male

DRUGS (2)
  1. NEURONTIN [Suspect]
     Indication: INSOMNIA
     Dosage: UNK
     Route: 048
  2. NEURONTIN [Suspect]
     Indication: PAIN IN EXTREMITY

REACTIONS (7)
  - DRUG INEFFECTIVE FOR UNAPPROVED INDICATION [None]
  - INJURY [None]
  - DEPRESSION [None]
  - ANXIETY [None]
  - SUICIDE ATTEMPT [None]
  - EMOTIONAL DISTRESS [None]
  - THINKING ABNORMAL [None]
